FAERS Safety Report 21803061 (Version 1)
Quarter: 2022Q4

REPORT INFORMATION
  Report Type: Report from Study
  Country: US (occurrence: US)
  Receive Date: 20221231
  Receipt Date: 20221231
  Transmission Date: 20230113
  Serious: No
  Sender: FDA-Public Use
  Company Number: US-ACORDA-ACO_174043_2022

PATIENT
  Age: 64 Year
  Sex: Male

DRUGS (6)
  1. INBRIJA [Suspect]
     Active Substance: LEVODOPA
     Indication: Parkinson^s disease
     Dosage: 2 DOSAGE FORM (CAPSULE), PRN (DO NOT EXCEED 5 DOSES PER DAY)
     Dates: start: 20210330
  2. INBRIJA [Suspect]
     Active Substance: LEVODOPA
     Indication: On and off phenomenon
     Dosage: 2 DOSAGE FORM (CAPSULE), PRN (DO NOT EXCEED 5 DOSES PER DAY)
     Dates: start: 20210330
  3. INBRIJA [Suspect]
     Active Substance: LEVODOPA
     Dosage: 2 DOSAGE FORM (CAPSULE), PRN (DO NOT EXCEED 5 DOSES PER DAY)
     Dates: start: 20210330
  4. CARBIDOPA\LEVODOPA [Concomitant]
     Active Substance: CARBIDOPA\LEVODOPA
     Indication: Product used for unknown indication
     Dosage: 25-100MG: THREE TABLETS THREE TIME PER DAY
     Route: 065
  5. CARBIDOPA\LEVODOPA [Concomitant]
     Active Substance: CARBIDOPA\LEVODOPA
     Dosage: ER 50-200MG 10PM 1-2AM OVERNIGHT
     Route: 065
  6. CARBIDOPA\LEVODOPA [Concomitant]
     Active Substance: CARBIDOPA\LEVODOPA
     Dosage: 25/200 EVERY 2 HRS DURING THE DAY

REACTIONS (10)
  - Device issue [Unknown]
  - Product storage error [Unknown]
  - Device defective [Unknown]
  - Product physical issue [Unknown]
  - Product packaging issue [Unknown]
  - Product residue present [Unknown]
  - Device delivery system issue [Unknown]
  - Drug effect less than expected [Unknown]
  - Malaise [Not Recovered/Not Resolved]
  - Drug ineffective [Unknown]

NARRATIVE: CASE EVENT DATE: 20221118
